FAERS Safety Report 5203842-8 (Version None)
Quarter: 2007Q1

REPORT INFORMATION
  Report Type: 
  Country: None (occurrence: None)
  Receive Date: 20070105
  Receipt Date: 20061220
  Transmission Date: 20070707
  Serious: Yes (Other)
  Sender: FDA-Public Use
  Company Number: TRP_0324_2005

PATIENT
  Age: 39 Year
  Sex: Male
  Weight: 74.3899 kg

DRUGS (6)
  1. RIBASPHERE [Suspect]
     Indication: HEPATITIS C
     Dosage: VAR BID PO
     Route: 048
     Dates: start: 20050715, end: 20050731
  2. PEGASYS [Suspect]
     Indication: HEPATITIS C
     Dosage: DF SC
     Route: 058
     Dates: start: 20050715, end: 20050731
  3. RISPERDAL [Concomitant]
  4. BUSPAR [Concomitant]
  5. LEXAPRO [Concomitant]
  6. KEPPRA [Concomitant]

REACTIONS (2)
  - INTENTIONAL OVERDOSE [None]
  - SUICIDE ATTEMPT [None]
